FAERS Safety Report 13242599 (Version 6)
Quarter: 2017Q3

REPORT INFORMATION
  Report Type: Report from Study
  Country: FR (occurrence: FR)
  Receive Date: 20170217
  Receipt Date: 20170712
  Transmission Date: 20171127
  Serious: Yes (Hospitalization, Other)
  Sender: FDA-Public Use
  Company Number: FR-PFIZER INC-2017054248

PATIENT
  Age: 65 Year
  Sex: Female
  Weight: 58 kg

DRUGS (8)
  1. FULVESTRANT. [Suspect]
     Active Substance: FULVESTRANT
     Dosage: 500 MG, CYCLIC, Q4W
     Route: 030
     Dates: start: 20170315
  2. VITAMIN D [Concomitant]
     Active Substance: CHOLECALCIFEROL
     Indication: OSTEOPOROSIS
     Dosage: UNK
     Dates: start: 201601
  3. FULVESTRANT. [Suspect]
     Active Substance: FULVESTRANT
     Indication: BREAST CANCER METASTATIC
     Dosage: 500 MG, CYCLIC (EVERY 4 WEEKS)
     Route: 030
     Dates: start: 20160706, end: 20170118
  4. CALCIUM [Concomitant]
     Active Substance: CALCIUM
     Indication: OSTEOPOROSIS
     Dosage: UNK
     Route: 048
     Dates: start: 2001
  5. LERCAN [Concomitant]
     Active Substance: LERCANIDIPINE
     Indication: HYPERTENSION
     Dosage: UNK
     Route: 048
     Dates: start: 2001
  6. PALBOCICLIB [Suspect]
     Active Substance: PALBOCICLIB
     Indication: BREAST CANCER METASTATIC
     Dosage: 100 MG, 1X/DAY
     Dates: start: 20160706, end: 20170203
  7. PALBOCICLIB [Suspect]
     Active Substance: PALBOCICLIB
     Dosage: 100 MG, 1X/DAY
     Dates: start: 20170204, end: 20170207
  8. FUNGIZONE [Concomitant]
     Active Substance: AMPHOTERICIN B
     Indication: ODYNOPHAGIA
     Dosage: UNK
     Route: 048
     Dates: start: 20160920

REACTIONS (4)
  - Abdominal pain [Recovered/Resolved]
  - Pancreatitis acute [Unknown]
  - Pyrexia [Recovered/Resolved]
  - Cough [Recovered/Resolved]

NARRATIVE: CASE EVENT DATE: 20170131
